FAERS Safety Report 9276817 (Version 1)
Quarter: 2013Q2

REPORT INFORMATION
  Report Type: Spontaneous
  Country: US (occurrence: US)
  Receive Date: 20130507
  Receipt Date: 20130507
  Transmission Date: 20140414
  Serious: No
  Sender: FDA-Public Use
  Company Number: US-ALEXION-A201300244

PATIENT
  Age: 62 Year
  Sex: Male
  Weight: 83 kg

DRUGS (21)
  1. SOLIRIS 300MG [Suspect]
     Indication: PAROXYSMAL NOCTURNAL HAEMOGLOBINURIA
     Dosage: 600 MG, QW
     Route: 042
     Dates: start: 20120920
  2. SOLIRIS 300MG [Suspect]
     Dosage: 900 MG, Q2W
     Route: 042
     Dates: start: 20121018
  3. ENALAPRIL MALEATE [Concomitant]
     Dosage: 10 MG, QD
     Route: 048
  4. WARFARIN [Concomitant]
     Dosage: 2.5 MG, TAKE AS DIRECTED
     Route: 048
  5. BRIMONIDINE [Concomitant]
     Dosage: 1 GTT, O.U., TID
     Route: 047
  6. BRIMONIDINE [Concomitant]
     Dosage: 1 GTT, O.U., BID
     Route: 047
  7. FOLIC ACID [Concomitant]
     Dosage: 1 MG, QD
     Route: 048
  8. HYDROCORTISONE VALERATE [Concomitant]
     Dosage: QD TO BID TO FACE PRN
     Route: 061
  9. KETOCONAZOLE [Concomitant]
     Dosage: TO FACE BID, PRN
     Route: 061
  10. KETOCONAZOLE [Concomitant]
     Dosage: SHAMPOO UP TO TWICE/WEEK
  11. BETAMETHASONE VALERATE [Concomitant]
     Indication: PSORIASIS
     Dosage: UNK, BID
     Route: 061
  12. ENDOCET [Concomitant]
     Indication: PAIN
     Dosage: 5/325 MG, 1-2 TABLETS Q6H, PRN
     Route: 048
  13. MAXITROL [Concomitant]
     Dosage: AS DIRECTED
     Route: 047
  14. MUPIROCIN [Concomitant]
     Indication: SKIN LESION
     Dosage: BID, PRN
     Route: 061
  15. FERROUS SULFATE [Concomitant]
     Dosage: 325 MG, QD
     Route: 048
  16. DICYCLOMINE [Concomitant]
     Indication: ABDOMINAL PAIN
     Dosage: 10 MG, QID, PRN
  17. VIAGRA [Concomitant]
     Dosage: 100 MG, PRN
     Route: 048
  18. MULTIVITAMINS, PLAIN [Concomitant]
     Dosage: 1 CAPSULE, QD
     Route: 048
  19. RANITIDINE HYDROCHLORIDE [Concomitant]
     Dosage: 150 MG, BID, PRN
     Route: 048
  20. BETAMETHASONE VALERATE [Concomitant]
     Dosage: APPLY TO SCALP, BID
     Route: 061
  21. OMEPRAZOLE [Concomitant]
     Dosage: 20 MG, UNK

REACTIONS (2)
  - Upper respiratory tract infection [Recovered/Resolved]
  - Lymphocyte count decreased [Unknown]
